FAERS Safety Report 5751847-0 (Version None)
Quarter: 2008Q2

REPORT INFORMATION
  Report Type: 
  Country: None (occurrence: None)
  Receive Date: 20080529
  Receipt Date: 20080422
  Transmission Date: 20081010
  Serious: No
  Sender: FDA-Public Use
  Company Number: US-BAYER-200822332NA

PATIENT
  Sex: Male

DRUGS (1)
  1. MAGNEVIST [Suspect]
     Indication: SCAN
     Dosage: TOTAL DAILY DOSE: 20 ML

REACTIONS (2)
  - NAUSEA [None]
  - RETCHING [None]
